FAERS Safety Report 5822092-5 (Version None)
Quarter: 2008Q3

REPORT INFORMATION
  Report Type: 
  Country: None (occurrence: None)
  Receive Date: 20080725
  Receipt Date: 20080717
  Transmission Date: 20090109
  Serious: Yes (Other)
  Sender: FDA-Public Use
  Company Number: US-JNJFOC-20080705169

PATIENT
  Sex: Female

DRUGS (2)
  1. TYLENOL SINUS CONGESTION + PAIN DAYTIME COOL BURST [Suspect]
     Indication: PYREXIA
     Route: 048
  2. BIRTH CONTROL [Concomitant]

REACTIONS (2)
  - EXPIRED DRUG ADMINISTERED [None]
  - HYPOAESTHESIA [None]
